FAERS Safety Report 8769309 (Version 2)
Quarter: 2012Q4

REPORT INFORMATION
  Report Type: 
  Country: US (occurrence: US)
  Receive Date: 20120905
  Receipt Date: 20121019
  Transmission Date: 20130627
  Serious: No
  Sender: FDA-Public Use
  Company Number: US-PFIZER INC-2012215860

PATIENT
  Sex: Female

DRUGS (1)
  1. PREMARIN [Suspect]
     Dosage: 0.625 mg (42.5 g tube)
     Route: 067

REACTIONS (4)
  - Drug ineffective [Unknown]
  - Pain [Unknown]
  - Burning sensation [Unknown]
  - Vulvovaginal discomfort [Unknown]
